FAERS Safety Report 22176333 (Version 1)
Quarter: 2023Q2

REPORT INFORMATION
  Report Type: Spontaneous
  Country: PT (occurrence: PT)
  Receive Date: 20230405
  Receipt Date: 20230405
  Transmission Date: 20230721
  Serious: Yes (Life-Threatening, Hospitalization, Other)
  Sender: FDA-Public Use
  Company Number: PT-BAXTER-2023BAX016839

PATIENT
  Age: 91 Year
  Sex: Female

DRUGS (8)
  1. LIDOCAINE [Suspect]
     Active Substance: LIDOCAINE
     Indication: Local anaesthesia
     Dosage: 2.5 MILLILITER TO 2 PERCENT TOTAL
     Route: 065
  2. LIDOCAINE [Suspect]
     Active Substance: LIDOCAINE
     Indication: Nerve block
  3. ROPIVACAINE [Suspect]
     Active Substance: ROPIVACAINE
     Indication: Nerve block
     Dosage: 2.5 MILLILITER TOTAL 1 DAY
     Route: 065
  4. FENTANYL [Suspect]
     Active Substance: FENTANYL
     Indication: Analgesic therapy
     Dosage: 20 MICROGRAM TOTAL 1 DAY
     Route: 065
  5. DROPERIDOL [Suspect]
     Active Substance: DROPERIDOL
     Indication: Sedative therapy
     Dosage: 0.625 MILLIGRAM TOTAL 1 DAY
     Route: 065
  6. FUROSEMIDE [Concomitant]
     Active Substance: FUROSEMIDE
     Dosage: 20 MILLIGRAM, QD
     Route: 065
  7. PROPOFOL [Concomitant]
     Active Substance: PROPOFOL
     Dosage: 20 MILLIGRAM
     Route: 065
  8. ACETAMINOPHEN [Concomitant]
     Active Substance: ACETAMINOPHEN
     Dosage: PRN (SOS)
     Route: 065

REACTIONS (8)
  - Anaesthetic complication [Recovered/Resolved]
  - Mydriasis [Recovered/Resolved]
  - Hypertension [Recovered/Resolved]
  - Central sleep apnoea syndrome [Unknown]
  - Sinus tachycardia [Recovered/Resolved]
  - Brain stem syndrome [Recovered/Resolved]
  - Altered state of consciousness [Recovered/Resolved]
  - Apnoea [Recovered/Resolved]
